FAERS Safety Report 22347341 (Version 2)
Quarter: 2023Q2

REPORT INFORMATION
  Report Type: Other
  Country: US (occurrence: None)
  Receive Date: 20230521
  Receipt Date: 20230524
  Transmission Date: 20230722
  Serious: Yes (Other)
  Sender: FDA-Public Use
  Company Number: US-ROCHE-3352298

PATIENT
  Age: 64 Year
  Sex: Female
  Weight: 72.64 kg

DRUGS (3)
  1. OCREVUS [Suspect]
     Active Substance: OCRELIZUMAB
     Indication: Primary progressive multiple sclerosis
     Dosage: ONGOING: YES, 600MG OVER 500ML
     Route: 042
     Dates: start: 202009
  2. CYCLOBENZAPRINE [Concomitant]
     Active Substance: CYCLOBENZAPRINE
  3. GABAPENTIN [Concomitant]
     Active Substance: GABAPENTIN

REACTIONS (4)
  - Kidney infection [Recovered/Resolved]
  - Urinary tract infection [Unknown]
  - Muscle spasms [Unknown]
  - Arthropathy [Unknown]

NARRATIVE: CASE EVENT DATE: 20220401
